FAERS Safety Report 19698783 (Version 18)
Quarter: 2025Q2

REPORT INFORMATION
  Report Type: Spontaneous
  Country: CA (occurrence: CA)
  Receive Date: 20210813
  Receipt Date: 20250627
  Transmission Date: 20250717
  Serious: Yes (Death, Life-Threatening, Hospitalization, Disabling, Congenital Anomaly, Other)
  Sender: Haleon PLC
  Company Number: CA-002147023-NVSC2021CA113633

PATIENT
  Age: 43 Year
  Sex: Female
  Weight: 68 kg

DRUGS (242)
  1. DICLOFENAC [Suspect]
     Active Substance: DICLOFENAC
     Indication: Rheumatoid arthritis
  2. DICLOFENAC [Suspect]
     Active Substance: DICLOFENAC
     Indication: Product used for unknown indication
  3. DICLOFENAC [Suspect]
     Active Substance: DICLOFENAC
  4. DICLOFENAC [Suspect]
     Active Substance: DICLOFENAC
  5. DICLOFENAC [Suspect]
     Active Substance: DICLOFENAC
  6. LEFLUNOMIDE [Suspect]
     Active Substance: LEFLUNOMIDE
     Indication: Rheumatoid arthritis
     Dosage: 1 DF, QD
     Route: 048
  7. LEFLUNOMIDE [Suspect]
     Active Substance: LEFLUNOMIDE
  8. LEFLUNOMIDE [Suspect]
     Active Substance: LEFLUNOMIDE
  9. LEFLUNOMIDE [Suspect]
     Active Substance: LEFLUNOMIDE
     Route: 048
  10. LEFLUNOMIDE [Suspect]
     Active Substance: LEFLUNOMIDE
  11. LEFLUNOMIDE [Suspect]
     Active Substance: LEFLUNOMIDE
  12. LEFLUNOMIDE [Suspect]
     Active Substance: LEFLUNOMIDE
  13. LEFLUNOMIDE [Suspect]
     Active Substance: LEFLUNOMIDE
     Route: 048
  14. CETIRIZINE HYDROCHLORIDE [Suspect]
     Active Substance: CETIRIZINE HYDROCHLORIDE
     Indication: Rheumatoid arthritis
  15. CETIRIZINE HYDROCHLORIDE [Suspect]
     Active Substance: CETIRIZINE HYDROCHLORIDE
  16. CETIRIZINE HYDROCHLORIDE [Suspect]
     Active Substance: CETIRIZINE HYDROCHLORIDE
  17. CETIRIZINE HYDROCHLORIDE [Suspect]
     Active Substance: CETIRIZINE HYDROCHLORIDE
  18. CETIRIZINE HYDROCHLORIDE [Suspect]
     Active Substance: CETIRIZINE HYDROCHLORIDE
     Dosage: 10 MG, QD (1 EVERY 1 DAY)
  19. CETIRIZINE HYDROCHLORIDE [Suspect]
     Active Substance: CETIRIZINE HYDROCHLORIDE
     Route: 048
  20. CETIRIZINE HYDROCHLORIDE [Suspect]
     Active Substance: CETIRIZINE HYDROCHLORIDE
  21. CETIRIZINE HYDROCHLORIDE [Suspect]
     Active Substance: CETIRIZINE HYDROCHLORIDE
     Route: 048
  22. DICLOFENAC SODIUM [Suspect]
     Active Substance: DICLOFENAC SODIUM
     Indication: Product used for unknown indication
  23. DICLOFENAC SODIUM [Suspect]
     Active Substance: DICLOFENAC SODIUM
  24. DICLOFENAC SODIUM [Suspect]
     Active Substance: DICLOFENAC SODIUM
  25. DICLOFENAC SODIUM [Suspect]
     Active Substance: DICLOFENAC SODIUM
  26. DICLOFENAC SODIUM [Suspect]
     Active Substance: DICLOFENAC SODIUM
  27. DICLOFENAC SODIUM [Suspect]
     Active Substance: DICLOFENAC SODIUM
  28. FOLIC ACID [Suspect]
     Active Substance: FOLIC ACID
     Indication: Rheumatoid arthritis
  29. FOLIC ACID [Suspect]
     Active Substance: FOLIC ACID
  30. FOLIC ACID [Suspect]
     Active Substance: FOLIC ACID
     Route: 048
  31. FOLIC ACID [Suspect]
     Active Substance: FOLIC ACID
  32. FOLIC ACID [Suspect]
     Active Substance: FOLIC ACID
  33. FOLIC ACID [Suspect]
     Active Substance: FOLIC ACID
  34. FOLIC ACID [Suspect]
     Active Substance: FOLIC ACID
  35. FOLIC ACID [Suspect]
     Active Substance: FOLIC ACID
     Route: 048
  36. FOLIC ACID [Suspect]
     Active Substance: FOLIC ACID
     Route: 048
  37. FOLIC ACID [Suspect]
     Active Substance: FOLIC ACID
  38. FOLIC ACID [Suspect]
     Active Substance: FOLIC ACID
     Route: 048
  39. FOLIC ACID [Suspect]
     Active Substance: FOLIC ACID
     Route: 048
  40. FOLIC ACID [Suspect]
     Active Substance: FOLIC ACID
  41. ADALIMUMAB [Suspect]
     Active Substance: ADALIMUMAB
     Indication: Rheumatoid arthritis
  42. ADALIMUMAB [Suspect]
     Active Substance: ADALIMUMAB
     Route: 058
  43. ADALIMUMAB [Suspect]
     Active Substance: ADALIMUMAB
     Route: 058
  44. ADALIMUMAB [Suspect]
     Active Substance: ADALIMUMAB
     Route: 058
  45. MYCOPHENOLATE MOFETIL [Suspect]
     Active Substance: MYCOPHENOLATE MOFETIL
     Indication: Product used for unknown indication
  46. METHOTREXATE [Suspect]
     Active Substance: METHOTREXATE
     Indication: Rheumatoid arthritis
     Route: 048
  47. METHOTREXATE [Suspect]
     Active Substance: METHOTREXATE
     Indication: Psoriatic arthropathy
     Dosage: 20 MG, QW
  48. METHOTREXATE [Suspect]
     Active Substance: METHOTREXATE
     Route: 058
  49. METHOTREXATE [Suspect]
     Active Substance: METHOTREXATE
     Dosage: 2 G, QD
     Route: 048
  50. METHOTREXATE [Suspect]
     Active Substance: METHOTREXATE
     Dosage: 20 MG, QD
  51. METHOTREXATE [Suspect]
     Active Substance: METHOTREXATE
  52. METHOTREXATE [Suspect]
     Active Substance: METHOTREXATE
     Dosage: UNK, QD
  53. METHOTREXATE [Suspect]
     Active Substance: METHOTREXATE
     Dosage: 25 MG, QD
  54. METHOTREXATE [Suspect]
     Active Substance: METHOTREXATE
  55. METHOTREXATE [Suspect]
     Active Substance: METHOTREXATE
     Route: 048
  56. METHOTREXATE [Suspect]
     Active Substance: METHOTREXATE
     Dosage: 1 G
  57. METHOTREXATE [Suspect]
     Active Substance: METHOTREXATE
     Route: 058
  58. METHOTREXATE [Suspect]
     Active Substance: METHOTREXATE
     Dosage: 2 G, QD
     Route: 048
  59. METHOTREXATE [Suspect]
     Active Substance: METHOTREXATE
     Dosage: 20 MG, QD
     Route: 048
  60. METHOTREXATE [Suspect]
     Active Substance: METHOTREXATE
  61. METHOTREXATE [Suspect]
     Active Substance: METHOTREXATE
     Route: 048
  62. METHOTREXATE [Suspect]
     Active Substance: METHOTREXATE
     Dosage: 20 MG, QD
     Route: 048
  63. METHOTREXATE [Suspect]
     Active Substance: METHOTREXATE
     Dosage: 25 MG, QW
     Route: 048
  64. METHOTREXATE [Suspect]
     Active Substance: METHOTREXATE
     Dosage: 25 MG, QW
     Route: 048
  65. METHOTREXATE [Suspect]
     Active Substance: METHOTREXATE
     Dosage: 2 G, QD
  66. METHOTREXATE [Suspect]
     Active Substance: METHOTREXATE
     Route: 013
  67. METHOTREXATE [Suspect]
     Active Substance: METHOTREXATE
     Dosage: 25 MG, QW
     Route: 013
  68. METHOTREXATE [Suspect]
     Active Substance: METHOTREXATE
     Dosage: 25 MG, QW
     Route: 048
  69. METHOTREXATE [Suspect]
     Active Substance: METHOTREXATE
     Dosage: 1 DOSAGE FORM
     Route: 048
  70. METHOTREXATE [Suspect]
     Active Substance: METHOTREXATE
     Route: 013
  71. METHOTREXATE [Suspect]
     Active Substance: METHOTREXATE
     Route: 058
  72. METHOTREXATE [Suspect]
     Active Substance: METHOTREXATE
  73. METHOTREXATE [Suspect]
     Active Substance: METHOTREXATE
     Dosage: 25 MG, QD
     Route: 048
  74. METHOTREXATE [Suspect]
     Active Substance: METHOTREXATE
  75. METHOTREXATE [Suspect]
     Active Substance: METHOTREXATE
     Route: 058
  76. METHOTREXATE [Suspect]
     Active Substance: METHOTREXATE
     Indication: Rheumatoid arthritis
     Route: 048
  77. METHOTREXATE [Suspect]
     Active Substance: METHOTREXATE
     Dosage: UNK
     Route: 048
  78. METHOTREXATE [Suspect]
     Active Substance: METHOTREXATE
     Dosage: UNK
     Route: 048
  79. METHOTREXATE [Suspect]
     Active Substance: METHOTREXATE
     Dosage: UNK
     Route: 048
  80. OXYCODONE HYDROCHLORIDE [Suspect]
     Active Substance: OXYCODONE HYDROCHLORIDE
     Indication: Product used for unknown indication
  81. ERELZI [Suspect]
     Active Substance: ETANERCEPT-SZZS
     Indication: Rheumatoid arthritis
  82. ERELZI [Suspect]
     Active Substance: ETANERCEPT-SZZS
     Route: 058
  83. ERELZI [Suspect]
     Active Substance: ETANERCEPT-SZZS
     Route: 048
  84. ERELZI [Suspect]
     Active Substance: ETANERCEPT-SZZS
     Route: 048
  85. ERELZI [Suspect]
     Active Substance: ETANERCEPT-SZZS
     Route: 058
  86. ERELZI [Suspect]
     Active Substance: ETANERCEPT-SZZS
     Route: 058
  87. ERELZI [Suspect]
     Active Substance: ETANERCEPT-SZZS
  88. ERELZI [Suspect]
     Active Substance: ETANERCEPT-SZZS
     Route: 058
  89. ERELZI [Suspect]
     Active Substance: ETANERCEPT-SZZS
     Route: 048
  90. RITUXIMAB [Suspect]
     Active Substance: RITUXIMAB
     Indication: Rheumatoid arthritis
  91. RITUXIMAB [Suspect]
     Active Substance: RITUXIMAB
  92. RITUXIMAB [Suspect]
     Active Substance: RITUXIMAB
  93. RITUXIMAB [Suspect]
     Active Substance: RITUXIMAB
  94. RITUXIMAB [Suspect]
     Active Substance: RITUXIMAB
  95. RITUXIMAB [Suspect]
     Active Substance: RITUXIMAB
  96. RITUXIMAB [Suspect]
     Active Substance: RITUXIMAB
  97. RITUXIMAB [Suspect]
     Active Substance: RITUXIMAB
  98. OXYCODONE [Suspect]
     Active Substance: OXYCODONE
     Indication: Product used for unknown indication
  99. OXYCODONE [Suspect]
     Active Substance: OXYCODONE
  100. COSENTYX [Suspect]
     Active Substance: SECUKINUMAB
     Indication: Psoriatic arthropathy
     Dosage: 40 MG, QD
  101. COSENTYX [Suspect]
     Active Substance: SECUKINUMAB
  102. COSENTYX [Suspect]
     Active Substance: SECUKINUMAB
     Route: 048
  103. COSENTYX [Suspect]
     Active Substance: SECUKINUMAB
     Dosage: 40 MG, QD
  104. COSENTYX [Suspect]
     Active Substance: SECUKINUMAB
  105. COSENTYX [Suspect]
     Active Substance: SECUKINUMAB
  106. COSENTYX [Suspect]
     Active Substance: SECUKINUMAB
  107. COSENTYX [Suspect]
     Active Substance: SECUKINUMAB
  108. HYRIMOZ [Suspect]
     Active Substance: ADALIMUMAB-ADAZ
     Indication: Rheumatoid arthritis
  109. HYRIMOZ [Suspect]
     Active Substance: ADALIMUMAB-ADAZ
     Route: 058
  110. CORTISONE ACETATE [Suspect]
     Active Substance: CORTISONE ACETATE
     Indication: Rheumatoid arthritis
  111. CORTISONE ACETATE [Suspect]
     Active Substance: CORTISONE ACETATE
  112. CORTISONE ACETATE [Suspect]
     Active Substance: CORTISONE ACETATE
  113. CORTISONE ACETATE [Suspect]
     Active Substance: CORTISONE ACETATE
  114. CORTISONE ACETATE [Suspect]
     Active Substance: CORTISONE ACETATE
  115. CORTISONE ACETATE [Suspect]
     Active Substance: CORTISONE ACETATE
  116. DESOXIMETASONE [Suspect]
     Active Substance: DESOXIMETASONE
     Indication: Rheumatoid arthritis
  117. DESOXIMETASONE [Suspect]
     Active Substance: DESOXIMETASONE
  118. DESOXIMETASONE [Suspect]
     Active Substance: DESOXIMETASONE
  119. DESOXIMETASONE [Suspect]
     Active Substance: DESOXIMETASONE
  120. DESOXIMETASONE [Suspect]
     Active Substance: DESOXIMETASONE
  121. DESOXIMETASONE [Suspect]
     Active Substance: DESOXIMETASONE
     Dosage: ORAL
  122. DESOXIMETASONE [Suspect]
     Active Substance: DESOXIMETASONE
  123. DESOXIMETASONE [Suspect]
     Active Substance: DESOXIMETASONE
     Dosage: ORAL
  124. DESOXIMETASONE [Suspect]
     Active Substance: DESOXIMETASONE
  125. DESOXIMETASONE [Suspect]
     Active Substance: DESOXIMETASONE
  126. DESOXIMETASONE [Suspect]
     Active Substance: DESOXIMETASONE
  127. DESOXIMETASONE [Suspect]
     Active Substance: DESOXIMETASONE
  128. DESOXIMETASONE [Suspect]
     Active Substance: DESOXIMETASONE
  129. DESOXIMETASONE [Suspect]
     Active Substance: DESOXIMETASONE
  130. DESOXIMETASONE [Suspect]
     Active Substance: DESOXIMETASONE
  131. DESOXIMETASONE [Suspect]
     Active Substance: DESOXIMETASONE
  132. DESOXIMETASONE [Suspect]
     Active Substance: DESOXIMETASONE
  133. ACETAMINOPHEN AND CODEINE [Suspect]
     Active Substance: ACETAMINOPHEN\CODEINE PHOSPHATE
     Indication: Product used for unknown indication
  134. PREDNISONE [Suspect]
     Active Substance: PREDNISONE
     Indication: Rheumatoid arthritis
  135. PREDNISONE [Suspect]
     Active Substance: PREDNISONE
  136. PREDNISONE [Suspect]
     Active Substance: PREDNISONE
  137. APREMILAST [Suspect]
     Active Substance: APREMILAST
     Indication: Product used for unknown indication
     Dosage: 2 EVERY 1 DAY
  138. ATOMOXETINE HYDROCHLORIDE [Suspect]
     Active Substance: ATOMOXETINE HYDROCHLORIDE
     Indication: Migraine
  139. ATOMOXETINE HYDROCHLORIDE [Suspect]
     Active Substance: ATOMOXETINE HYDROCHLORIDE
  140. BERINERT [Suspect]
     Active Substance: HUMAN C1-ESTERASE INHIBITOR
     Indication: Product used for unknown indication
  141. BUTRANS [Suspect]
     Active Substance: BUPRENORPHINE
     Indication: Product used for unknown indication
  142. CALCIUM ASCORBATE [Suspect]
     Active Substance: CALCIUM ASCORBATE
     Indication: Product used for unknown indication
  143. CALCIUM GLUBIONATE [Suspect]
     Active Substance: CALCIUM GLUBIONATE
     Indication: Product used for unknown indication
  144. CELECOXIB [Suspect]
     Active Substance: CELECOXIB
     Indication: Product used for unknown indication
  145. CELECOXIB [Suspect]
     Active Substance: CELECOXIB
  146. CHLORHEXIDINE GLUCONATE [Suspect]
     Active Substance: CHLORHEXIDINE GLUCONATE
     Indication: Rheumatoid arthritis
  147. CHOLECALCIFEROL [Suspect]
     Active Substance: CHOLECALCIFEROL
     Indication: Product used for unknown indication
  148. CIMZIA [Suspect]
     Active Substance: CERTOLIZUMAB PEGOL
     Indication: Rheumatoid arthritis
     Route: 058
  149. CIMZIA [Suspect]
     Active Substance: CERTOLIZUMAB PEGOL
     Indication: Psoriasis
     Route: 058
  150. CYCLOBENZAPRINE [Suspect]
     Active Substance: CYCLOBENZAPRINE
     Indication: Product used for unknown indication
  151. DICLOFENAC POTASSIUM [Suspect]
     Active Substance: DICLOFENAC POTASSIUM
     Indication: Product used for unknown indication
  152. ENBREL [Suspect]
     Active Substance: ETANERCEPT
     Indication: Rheumatoid arthritis
     Route: 058
  153. HYDROMORPHONE [Suspect]
     Active Substance: HYDROMORPHONE
     Indication: Product used for unknown indication
  154. INFLIXIMAB [Suspect]
     Active Substance: INFLIXIMAB
     Indication: Rheumatoid arthritis
  155. METHYLPREDNISOLONE SODIUM SUCCINATE [Suspect]
     Active Substance: METHYLPREDNISOLONE SODIUM SUCCINATE
     Indication: Rheumatoid arthritis
  156. PANTOPRAZOLE [Suspect]
     Active Substance: PANTOPRAZOLE
     Indication: Rheumatoid arthritis
  157. TOFACITINIB CITRATE [Suspect]
     Active Substance: TOFACITINIB CITRATE
     Indication: Rheumatoid arthritis
  158. TRAMADOL HYDROCHLORIDE [Suspect]
     Active Substance: TRAMADOL HYDROCHLORIDE
     Indication: Product used for unknown indication
  159. XELJANZ [Suspect]
     Active Substance: TOFACITINIB CITRATE
     Indication: Rheumatoid arthritis
  160. MYCOPHENOLATE MOFETIL [Suspect]
     Active Substance: MYCOPHENOLATE MOFETIL
     Indication: Product used for unknown indication
  161. LEFLUNOMIDE [Suspect]
     Active Substance: LEFLUNOMIDE
     Indication: Rheumatoid arthritis
     Dosage: 1 DOSAGE FORM, QD
     Route: 048
  162. LEFLUNOMIDE [Suspect]
     Active Substance: LEFLUNOMIDE
     Dosage: 1 DOSAGE FORM, QD
     Route: 048
  163. LEFLUNOMIDE [Suspect]
     Active Substance: LEFLUNOMIDE
     Route: 048
  164. LEFLUNOMIDE [Suspect]
     Active Substance: LEFLUNOMIDE
     Route: 048
  165. LEFLUNOMIDE [Suspect]
     Active Substance: LEFLUNOMIDE
  166. LEFLUNOMIDE [Suspect]
     Active Substance: LEFLUNOMIDE
  167. ACETAMINOPHEN [Suspect]
     Active Substance: ACETAMINOPHEN
     Indication: Product used for unknown indication
     Route: 048
  168. ACETAMINOPHEN [Suspect]
     Active Substance: ACETAMINOPHEN
     Indication: Rheumatoid arthritis
  169. ACETAMINOPHEN [Suspect]
     Active Substance: ACETAMINOPHEN
  170. ACETAMINOPHEN [Suspect]
     Active Substance: ACETAMINOPHEN
  171. VOLTAREN [Suspect]
     Active Substance: DICLOFENAC SODIUM
     Indication: Product used for unknown indication
  172. ALENDRONIC ACID [Suspect]
     Active Substance: ALENDRONIC ACID
     Indication: Rheumatoid arthritis
     Route: 048
  173. ALENDRONATE SODIUM [Suspect]
     Active Substance: ALENDRONATE SODIUM
     Indication: Rheumatoid arthritis
  174. ALENDRONATE SODIUM [Suspect]
     Active Substance: ALENDRONATE SODIUM
     Route: 048
  175. ALENDRONATE SODIUM [Suspect]
     Active Substance: ALENDRONATE SODIUM
     Route: 048
  176. ALENDRONATE SODIUM [Suspect]
     Active Substance: ALENDRONATE SODIUM
     Route: 048
  177. ALENDRONATE SODIUM [Suspect]
     Active Substance: ALENDRONATE SODIUM
  178. ALENDRONATE SODIUM [Suspect]
     Active Substance: ALENDRONATE SODIUM
     Route: 048
  179. ALENDRONATE SODIUM [Suspect]
     Active Substance: ALENDRONATE SODIUM
  180. ALENDRONATE SODIUM\CHOLECALCIFEROL [Suspect]
     Active Substance: ALENDRONATE SODIUM\CHOLECALCIFEROL
     Indication: Rheumatoid arthritis
     Route: 048
  181. ALENDRONATE SODIUM\CHOLECALCIFEROL [Suspect]
     Active Substance: ALENDRONATE SODIUM\CHOLECALCIFEROL
  182. CORTISONE [Suspect]
     Active Substance: CORTISONE
     Indication: Rheumatoid arthritis
  183. CORTISONE [Suspect]
     Active Substance: CORTISONE
  184. CORTISONE [Suspect]
     Active Substance: CORTISONE
  185. CORTISONE [Suspect]
     Active Substance: CORTISONE
  186. CORTISONE [Suspect]
     Active Substance: CORTISONE
  187. CORTISONE [Suspect]
     Active Substance: CORTISONE
  188. HYDROXYCHLOROQUINE SULFATE [Suspect]
     Active Substance: HYDROXYCHLOROQUINE SULFATE
     Indication: Systemic lupus erythematosus
     Route: 048
  189. HYDROXYCHLOROQUINE SULFATE [Suspect]
     Active Substance: HYDROXYCHLOROQUINE SULFATE
     Indication: Rheumatoid arthritis
     Route: 048
  190. HYDROXYCHLOROQUINE SULFATE [Suspect]
     Active Substance: HYDROXYCHLOROQUINE SULFATE
  191. HYDROXYCHLOROQUINE SULFATE [Suspect]
     Active Substance: HYDROXYCHLOROQUINE SULFATE
     Route: 005
  192. HYDROXYCHLOROQUINE SULFATE [Suspect]
     Active Substance: HYDROXYCHLOROQUINE SULFATE
  193. HYDROXYCHLOROQUINE SULFATE [Suspect]
     Active Substance: HYDROXYCHLOROQUINE SULFATE
     Route: 048
  194. HYDROXYCHLOROQUINE SULFATE [Suspect]
     Active Substance: HYDROXYCHLOROQUINE SULFATE
  195. HYDROXYCHLOROQUINE SULFATE [Suspect]
     Active Substance: HYDROXYCHLOROQUINE SULFATE
     Route: 066
  196. HYDROXYCHLOROQUINE SULFATE [Suspect]
     Active Substance: HYDROXYCHLOROQUINE SULFATE
     Route: 048
  197. HYDROXYCHLOROQUINE SULFATE [Suspect]
     Active Substance: HYDROXYCHLOROQUINE SULFATE
     Route: 048
  198. HYDROXYCHLOROQUINE SULFATE [Suspect]
     Active Substance: HYDROXYCHLOROQUINE SULFATE
  199. NAPROXEN SODIUM [Suspect]
     Active Substance: NAPROXEN SODIUM
     Indication: Rheumatoid arthritis
  200. PREDNISONE [Suspect]
     Active Substance: PREDNISONE
     Indication: Rheumatoid arthritis
  201. PREDNISONE [Suspect]
     Active Substance: PREDNISONE
     Route: 048
  202. PREDNISONE [Suspect]
     Active Substance: PREDNISONE
  203. PREDNISONE [Suspect]
     Active Substance: PREDNISONE
  204. PSEUDOEPHEDRINE HYDROCHLORIDE [Suspect]
     Active Substance: PSEUDOEPHEDRINE HYDROCHLORIDE
     Indication: Rheumatoid arthritis
  205. PSEUDOEPHEDRINE HYDROCHLORIDE [Suspect]
     Active Substance: PSEUDOEPHEDRINE HYDROCHLORIDE
  206. PSEUDOEPHEDRINE HYDROCHLORIDE [Suspect]
     Active Substance: PSEUDOEPHEDRINE HYDROCHLORIDE
  207. PSEUDOEPHEDRINE HYDROCHLORIDE [Suspect]
     Active Substance: PSEUDOEPHEDRINE HYDROCHLORIDE
  208. PSEUDOEPHEDRINE HYDROCHLORIDE [Suspect]
     Active Substance: PSEUDOEPHEDRINE HYDROCHLORIDE
  209. SULFASALAZINE [Suspect]
     Active Substance: SULFASALAZINE
     Indication: Rheumatoid arthritis
  210. SULFASALAZINE [Suspect]
     Active Substance: SULFASALAZINE
     Indication: Psoriatic arthropathy
     Dosage: 1G, 2 EVERY 1 DAYS
     Route: 048
  211. SULFASALAZINE [Suspect]
     Active Substance: SULFASALAZINE
     Indication: Product used for unknown indication
     Route: 048
  212. SULFASALAZINE [Suspect]
     Active Substance: SULFASALAZINE
     Dosage: 1G, 2 EVERY 1 DAYS
     Route: 048
  213. SULFASALAZINE [Suspect]
     Active Substance: SULFASALAZINE
     Route: 048
  214. SULFASALAZINE [Suspect]
     Active Substance: SULFASALAZINE
     Route: 048
  215. SULFASALAZINE [Suspect]
     Active Substance: SULFASALAZINE
     Route: 048
  216. SULFASALAZINE [Suspect]
     Active Substance: SULFASALAZINE
  217. SULFASALAZINE [Suspect]
     Active Substance: SULFASALAZINE
  218. SULFASALAZINE [Suspect]
     Active Substance: SULFASALAZINE
     Route: 048
  219. TRIAMCINOLONE ACETONIDE [Suspect]
     Active Substance: TRIAMCINOLONE ACETONIDE
     Indication: Rheumatoid arthritis
  220. ACTEMRA [Suspect]
     Active Substance: TOCILIZUMAB
     Indication: Rheumatoid arthritis
  221. ACTEMRA [Suspect]
     Active Substance: TOCILIZUMAB
  222. ACTEMRA [Suspect]
     Active Substance: TOCILIZUMAB
  223. ACTEMRA [Suspect]
     Active Substance: TOCILIZUMAB
  224. ACTEMRA [Suspect]
     Active Substance: TOCILIZUMAB
  225. ACTEMRA [Suspect]
     Active Substance: TOCILIZUMAB
  226. ACTEMRA [Suspect]
     Active Substance: TOCILIZUMAB
  227. ACTEMRA [Suspect]
     Active Substance: TOCILIZUMAB
  228. DICLOFENAC SODIUM [Suspect]
     Active Substance: DICLOFENAC SODIUM
     Indication: Product used for unknown indication
  229. ARAVA [Suspect]
     Active Substance: LEFLUNOMIDE
     Indication: Rheumatoid arthritis
     Route: 048
  230. ARAVA [Suspect]
     Active Substance: LEFLUNOMIDE
     Route: 048
  231. ARAVA [Suspect]
     Active Substance: LEFLUNOMIDE
  232. ARAVA [Suspect]
     Active Substance: LEFLUNOMIDE
  233. ARAVA [Suspect]
     Active Substance: LEFLUNOMIDE
  234. BETAMETHASONE VALERATE [Suspect]
     Active Substance: BETAMETHASONE VALERATE
     Indication: Product used for unknown indication
  235. BOTULINUM TOXIN TYPE A [Suspect]
     Active Substance: BOTULINUM TOXIN TYPE A
     Indication: Product used for unknown indication
  236. BUPRENORPHINE HYDROCHLORIDE [Suspect]
     Active Substance: BUPRENORPHINE HYDROCHLORIDE
     Indication: Product used for unknown indication
  237. CANDESARTAN [Suspect]
     Active Substance: CANDESARTAN
     Indication: Migraine
     Route: 048
  238. CERTOLIZUMAB PEGOL [Suspect]
     Active Substance: CERTOLIZUMAB PEGOL
     Indication: Product used for unknown indication
     Route: 058
  239. CERTOLIZUMAB PEGOL [Suspect]
     Active Substance: CERTOLIZUMAB PEGOL
  240. ERENUMAB-AOOE [Suspect]
     Active Substance: ERENUMAB-AOOE
     Indication: Migraine
  241. ERENUMAB-AOOE [Suspect]
     Active Substance: ERENUMAB-AOOE
  242. PHENYLEPHRINE HYDROCHLORIDE [Suspect]
     Active Substance: PHENYLEPHRINE HYDROCHLORIDE
     Indication: Rheumatoid arthritis

REACTIONS (75)
  - Pancreatitis [Fatal]
  - Infusion site reaction [Fatal]
  - Inflammation [Fatal]
  - Incorrect route of product administration [Fatal]
  - Peripheral venous disease [Fatal]
  - Joint range of motion decreased [Fatal]
  - Infection [Fatal]
  - Irritable bowel syndrome [Fatal]
  - Laryngitis [Fatal]
  - Lip dry [Fatal]
  - Joint stiffness [Fatal]
  - Therapy non-responder [Fatal]
  - Lung disorder [Fatal]
  - Pemphigus [Fatal]
  - Swollen joint count [Fatal]
  - Infusion related reaction [Fatal]
  - Inappropriate schedule of product administration [Fatal]
  - Liver injury [Fatal]
  - X-ray abnormal [Fatal]
  - Maternal exposure timing unspecified [Fatal]
  - Exposure during pregnancy [Fatal]
  - Glossodynia [Fatal]
  - Live birth [Fatal]
  - Musculoskeletal stiffness [Fatal]
  - Malaise [Fatal]
  - Hypersensitivity [Fatal]
  - Helicobacter infection [Fatal]
  - Hand deformity [Fatal]
  - Insomnia [Fatal]
  - Intentional product use issue [Fatal]
  - Urticaria [Fatal]
  - General physical health deterioration [Fatal]
  - Hypoaesthesia [Fatal]
  - Injury [Fatal]
  - Maternal exposure during pregnancy [Fatal]
  - Product use in unapproved indication [Fatal]
  - Nausea [Fatal]
  - Off label use [Fatal]
  - Pain [Fatal]
  - Hepatic enzyme increased [Fatal]
  - Joint swelling [Fatal]
  - Oedema [Fatal]
  - Vomiting [Fatal]
  - Osteoarthritis [Fatal]
  - Weight decreased [Fatal]
  - Swelling [Fatal]
  - Weight increased [Fatal]
  - Wound [Fatal]
  - Obesity [Fatal]
  - Road traffic accident [Fatal]
  - Paraesthesia [Fatal]
  - Synovitis [Fatal]
  - Underdose [Fatal]
  - Psoriatic arthropathy [Fatal]
  - Memory impairment [Fatal]
  - Rash [Fatal]
  - Rectal haemorrhage [Fatal]
  - Muscle spasms [Fatal]
  - Mobility decreased [Fatal]
  - Laboratory test abnormal [Fatal]
  - Sciatica [Fatal]
  - Wound infection [Fatal]
  - Pericarditis [Fatal]
  - Systemic lupus erythematosus [Fatal]
  - Rheumatoid arthritis [Fatal]
  - Wheezing [Fatal]
  - White blood cell count increased [Fatal]
  - Muscular weakness [Fatal]
  - Oedema peripheral [Fatal]
  - Pain in extremity [Fatal]
  - Night sweats [Fatal]
  - Musculoskeletal pain [Fatal]
  - Rheumatoid factor positive [Fatal]
  - Liver disorder [Fatal]
  - Porphyria acute [Fatal]
